FAERS Safety Report 20196743 (Version 2)
Quarter: 2022Q1

REPORT INFORMATION
  Report Type: Report from Study
  Country: US (occurrence: US)
  Receive Date: 20211216
  Receipt Date: 20220129
  Transmission Date: 20220424
  Serious: Yes (Other)
  Sender: FDA-Public Use
  Company Number: US-ABBVIE-21K-163-4195709-00

PATIENT
  Sex: Female

DRUGS (1)
  1. HUMIRA [Suspect]
     Active Substance: ADALIMUMAB
     Indication: Hidradenitis
     Dosage: CITRATE FREE
     Route: 058

REACTIONS (11)
  - Impaired gastric emptying [Unknown]
  - Seizure [Unknown]
  - Mobility decreased [Unknown]
  - Feeding disorder [Unknown]
  - Diabetes mellitus [Unknown]
  - Arteriosclerosis [Unknown]
  - Diarrhoea [Unknown]
  - Surgery [Not Recovered/Not Resolved]
  - Eye disorder [Unknown]
  - Diplopia [Not Recovered/Not Resolved]
  - Headache [Unknown]

NARRATIVE: CASE EVENT DATE: 20210101
